FAERS Safety Report 22005659 (Version 4)
Quarter: 2023Q2

REPORT INFORMATION
  Report Type: Spontaneous
  Country: US (occurrence: US)
  Receive Date: 20230217
  Receipt Date: 20230411
  Transmission Date: 20230722
  Serious: Yes (Hospitalization, Other)
  Sender: FDA-Public Use
  Company Number: US-PFIZER INC-PV202300027935

PATIENT
  Age: 69 Year
  Sex: Female
  Weight: 69.388 kg

DRUGS (2)
  1. FLAGYL [Suspect]
     Active Substance: METRONIDAZOLE\METRONIDAZOLE HYDROCHLORIDE
     Indication: Diverticulitis
     Dosage: 500 MG, 4X/DAY
     Dates: start: 20230131, end: 20230204
  2. CIPRO [Suspect]
     Active Substance: CIPROFLOXACIN HYDROCHLORIDE
     Indication: Diverticulitis
     Dosage: 500 MG, 2X/DAY
     Dates: start: 20230131, end: 20230210

REACTIONS (9)
  - Product formulation issue [Unknown]
  - Coeliac disease [Not Recovered/Not Resolved]
  - Condition aggravated [Not Recovered/Not Resolved]
  - Brain fog [Recovered/Resolved]
  - Periorbital swelling [Recovered/Resolved]
  - Abdominal pain [Recovered/Resolved]
  - Illness [Recovered/Resolved]
  - Abdominal distension [Recovered/Resolved]
  - Nausea [Recovered/Resolved]

NARRATIVE: CASE EVENT DATE: 20230101
